FAERS Safety Report 24282692 (Version 4)
Quarter: 2024Q4

REPORT INFORMATION
  Report Type: Spontaneous
  Country: US (occurrence: US)
  Receive Date: 20240904
  Receipt Date: 20241229
  Transmission Date: 20250114
  Serious: Yes (Hospitalization, Other)
  Sender: ALEXION PHARMACEUTICALS
  Company Number: 2024A195721

PATIENT

DRUGS (4)
  1. WAINUA [Suspect]
     Active Substance: EPLONTERSEN
     Dosage: 45 MILLIGRAM
  2. WAINUA [Suspect]
     Active Substance: EPLONTERSEN
     Dosage: 45 MILLIGRAM
     Route: 058
  3. WAINUA [Suspect]
     Active Substance: EPLONTERSEN
     Dosage: 45 MILLIGRAM
  4. WAINUA [Suspect]
     Active Substance: EPLONTERSEN
     Dosage: 45 MILLIGRAM
     Route: 058

REACTIONS (10)
  - Acute kidney injury [Unknown]
  - Pleural effusion [Unknown]
  - Hyperkalaemia [Unknown]
  - Renal failure [Unknown]
  - Artery dissection [Unknown]
  - Glomerular vascular disorder [Unknown]
  - Glomerular filtration rate [Unknown]
  - Granular cell tumour [Unknown]
  - Increased appetite [Unknown]
  - Weight increased [Unknown]
